FAERS Safety Report 5955459-5 (Version None)
Quarter: 2008Q4

REPORT INFORMATION
  Report Type: 
  Country: None (occurrence: None)
  Receive Date: 20081113
  Receipt Date: 20081113
  Transmission Date: 20090506
  Serious: Yes (Hospitalization)
  Sender: FDA-Public Use
  Company Number: None

PATIENT
  Age: 60 Year
  Sex: Male
  Weight: 96.6 kg

DRUGS (2)
  1. PROPOFOL [Suspect]
     Indication: SURGERY
     Dosage: ONCE IV
     Route: 042
     Dates: start: 20080801, end: 20080801
  2. FENTANYL-100 [Suspect]
     Indication: SURGERY
     Dosage: ONCE IV
     Route: 042
     Dates: start: 20080801, end: 20080801

REACTIONS (7)
  - ANAPHYLACTIC REACTION [None]
  - BRADYCARDIA [None]
  - EXTRASYSTOLES [None]
  - HYPOTENSION [None]
  - HYPOXIA [None]
  - NO THERAPEUTIC RESPONSE [None]
  - PROCEDURAL COMPLICATION [None]
